FAERS Safety Report 16219369 (Version 1)
Quarter: 2019Q2

REPORT INFORMATION
  Report Type: Spontaneous
  Country: US (occurrence: US)
  Receive Date: 20190419
  Receipt Date: 20190419
  Transmission Date: 20190711
  Serious: No
  Sender: FDA-Public Use
  Company Number: US-PURDUE-USA-2019-0146123

PATIENT
  Age: 19 Year
  Sex: Female

DRUGS (2)
  1. APTENSIO XR [Suspect]
     Active Substance: METHYLPHENIDATE HYDROCHLORIDE
     Indication: MAJOR DEPRESSION
     Dosage: 40 MG, UNK
     Route: 048
  2. APTENSIO XR [Suspect]
     Active Substance: METHYLPHENIDATE HYDROCHLORIDE
     Indication: DEPERSONALISATION/DEREALISATION DISORDER

REACTIONS (1)
  - Off label use [Unknown]
